FAERS Safety Report 12278627 (Version 2)
Quarter: 2016Q3

REPORT INFORMATION
  Report Type: Spontaneous
  Country: US (occurrence: US)
  Receive Date: 20160418
  Receipt Date: 20160705
  Transmission Date: 20161109
  Serious: No
  Sender: FDA-Public Use
  Company Number: US-PFIZER INC-2016175520

PATIENT
  Sex: Female

DRUGS (1)
  1. LYRICA [Suspect]
     Active Substance: PREGABALIN
     Dosage: 250 MG, UNK

REACTIONS (9)
  - Somnolence [Unknown]
  - Cold sweat [Unknown]
  - Vomiting [Unknown]
  - Intentional product misuse [Unknown]
  - Gastroenteritis viral [Unknown]
  - Withdrawal syndrome [Unknown]
  - Hyperhidrosis [Unknown]
  - Night sweats [Unknown]
  - Headache [Unknown]
